FAERS Safety Report 9403109 (Version 4)
Quarter: 2014Q1

REPORT INFORMATION
  Report Type: Spontaneous
  Country: US (occurrence: US)
  Receive Date: 20130716
  Receipt Date: 20140318
  Transmission Date: 20141002
  Serious: Yes (Other)
  Sender: FDA-Public Use
  Company Number: US-GLAXOSMITHKLINE-A1033379A

PATIENT
  Age: 69 Year
  Sex: Male
  Weight: 83.2 kg

DRUGS (1)
  1. AVANDIA [Suspect]
     Indication: DIABETES MELLITUS
     Route: 048
     Dates: start: 20060406, end: 2010

REACTIONS (8)
  - Myocardial infarction [Unknown]
  - Cerebrovascular accident [Unknown]
  - Angina pectoris [Unknown]
  - Ischaemic cardiomyopathy [Unknown]
  - Aortic valve incompetence [Unknown]
  - Cardiac failure congestive [Unknown]
  - Stress [Unknown]
  - Diabetic cardiomyopathy [Unknown]
